FAERS Safety Report 22114940 (Version 1)
Quarter: 2023Q1

REPORT INFORMATION
  Report Type: Spontaneous
  Country: US (occurrence: US)
  Receive Date: 20230320
  Receipt Date: 20230320
  Transmission Date: 20230417
  Serious: Yes (Hospitalization, Other)
  Sender: FDA-Public Use
  Company Number: US-PFIZER INC-PV202300049992

PATIENT
  Age: 9 Month
  Sex: Male

DRUGS (1)
  1. INOTUZUMAB OZOGAMICIN [Suspect]
     Active Substance: INOTUZUMAB OZOGAMICIN
     Indication: Acute lymphocytic leukaemia recurrent
     Dosage: 9 CYCLE (WEEKLY FOR 3 WEEKS/MONTH FOR THE FIRST FIVE CYCLES, THEN SPACED BI-WEEKLY AND THEN MONTHLY)

REACTIONS (5)
  - Mucocutaneous haemorrhage [Recovered/Resolved]
  - Pseudocellulitis [Unknown]
  - Pancytopenia [Unknown]
  - Platelet dysfunction [Unknown]
  - Off label use [Unknown]
